FAERS Safety Report 5734501-0 (Version None)
Quarter: 2008Q2

REPORT INFORMATION
  Report Type: 
  Country: None (occurrence: None)
  Receive Date: 20080508
  Receipt Date: 20080508
  Transmission Date: 20081010
  Serious: Yes (Other)
  Sender: FDA-Public Use
  Company Number: None

PATIENT
  Age: 72 Year
  Sex: Male
  Weight: 109 kg

DRUGS (2)
  1. MIDAZOLAM HCL [Suspect]
     Dates: start: 20070321, end: 20070321
  2. ATIVAN [Suspect]

REACTIONS (2)
  - RESPIRATORY DISORDER [None]
  - SEDATION [None]
